FAERS Safety Report 21728141 (Version 1)
Quarter: 2022Q4

REPORT INFORMATION
  Report Type: Other
  Country: CN (occurrence: None)
  Receive Date: 20221214
  Receipt Date: 20221214
  Transmission Date: 20230113
  Serious: Yes (Death)
  Sender: FDA-Public Use
  Company Number: CN-ROCHE-3046728

PATIENT
  Age: 62 Year
  Sex: Male
  Weight: 75 kg

DRUGS (2)
  1. AVASTIN [Suspect]
     Active Substance: BEVACIZUMAB
     Indication: Non-small cell lung cancer
     Dosage: FORM OF ADMIN: 100 MG
     Route: 041
     Dates: start: 20170905
  2. AVASTIN [Suspect]
     Active Substance: BEVACIZUMAB
     Dosage: FORM OF ADMIN: 100 MG
     Route: 041
     Dates: start: 20181106

REACTIONS (4)
  - Gout [Unknown]
  - Gait inability [Unknown]
  - Tumour compression [Fatal]
  - Tumour compression [Fatal]

NARRATIVE: CASE EVENT DATE: 20220601
